FAERS Safety Report 16739532 (Version 1)
Quarter: 2019Q3

REPORT INFORMATION
  Report Type: Spontaneous
  Country: JP (occurrence: JP)
  Receive Date: 20190826
  Receipt Date: 20190826
  Transmission Date: 20191005
  Serious: Yes (Death)
  Sender: FDA-Public Use
  Company Number: PHHY2019JP197446

PATIENT

DRUGS (2)
  1. TRASTUZUMAB. [Suspect]
     Active Substance: TRASTUZUMAB
     Indication: SALIVARY GLAND CANCER
     Dosage: 6 MG/KG, 8 CYCLIC  (LOADING DOSE 8 MG/KG)
     Route: 065
  2. DOCETAXEL. [Suspect]
     Active Substance: DOCETAXEL
     Indication: SALIVARY GLAND CANCER
     Dosage: 70 MG/M2, Q3W (8 CYCLES)
     Route: 065

REACTIONS (2)
  - Hypoalbuminaemia [Fatal]
  - Product use in unapproved indication [Unknown]
